FAERS Safety Report 25240178 (Version 1)
Quarter: 2025Q2

REPORT INFORMATION
  Report Type: Spontaneous
  Country: PR (occurrence: PR)
  Receive Date: 20250425
  Receipt Date: 20250425
  Transmission Date: 20250717
  Serious: Yes (Other)
  Sender: PFIZER
  Company Number: PR-PFIZER INC-202500086736

PATIENT
  Age: 94 Year
  Sex: Male

DRUGS (5)
  1. VYNDAMAX [Suspect]
     Active Substance: TAFAMIDIS
     Dates: start: 20250316, end: 20250329
  2. CITALOPRAM [Concomitant]
     Active Substance: CITALOPRAM
  3. MEMANTINE [Concomitant]
     Active Substance: MEMANTINE
  4. CYANOCOBALAMIN [Concomitant]
     Active Substance: CYANOCOBALAMIN
  5. VITAMIN C [Concomitant]
     Active Substance: ASCORBIC ACID

REACTIONS (1)
  - Aggression [Recovered/Resolved]

NARRATIVE: CASE EVENT DATE: 20250316
